FAERS Safety Report 6614650-5 (Version None)
Quarter: 2010Q1

REPORT INFORMATION
  Report Type: 
  Country: None (occurrence: None)
  Receive Date: 20100226
  Receipt Date: 20100216
  Transmission Date: 20100710
  Serious: Yes (Other)
  Sender: FDA-Public Use
  Company Number: 231638J10USA

PATIENT
  Age: 31 Year
  Sex: Male

DRUGS (2)
  1. REBIF [Suspect]
     Indication: MULTIPLE SCLEROSIS
     Dosage: 44 MCG, 3 IN 1 WEEKS, SUBCUTANEOUS
     Route: 058
     Dates: start: 20091218, end: 20100201
  2. STEROIDS (CORTICOSTEROIDS) [Suspect]
     Dosage: SEVERAL HIGH DOSES

REACTIONS (1)
  - OSTEONECROSIS [None]
